FAERS Safety Report 22689946 (Version 2)
Quarter: 2023Q4

REPORT INFORMATION
  Report Type: Spontaneous
  Country: US (occurrence: US)
  Receive Date: 20230711
  Receipt Date: 20231209
  Transmission Date: 20240109
  Serious: Yes (Other)
  Sender: FDA-Public Use
  Company Number: US-JNJFOC-20230705982

PATIENT
  Age: 3 Year

DRUGS (12)
  1. TYLENOL REGULAR STRENGTH [Suspect]
     Active Substance: ACETAMINOPHEN
     Indication: Product used for unknown indication
     Dosage: FIRST, SECOND AND THIRD TRIMESTER
     Route: 064
     Dates: start: 201811, end: 201907
  2. TYLENOL EXTRA STRENGTH [Suspect]
     Active Substance: ACETAMINOPHEN
     Indication: Product used for unknown indication
     Dosage: FIRST, SECOND AND THIRD TRIMESTER
     Route: 064
     Dates: start: 201811, end: 201907
  3. TYLENOL EXTRA STRENGTH [Suspect]
     Active Substance: ACETAMINOPHEN
     Indication: Product used for unknown indication
     Route: 064
     Dates: start: 201810, end: 201907
  4. ACETAMINOPHEN [Suspect]
     Active Substance: ACETAMINOPHEN
     Indication: Product used for unknown indication
     Dosage: FIRST, SECOND AND THIRD TRIMESTER
     Route: 064
     Dates: start: 201811, end: 201906
  5. ACETAMINOPHEN [Suspect]
     Active Substance: ACETAMINOPHEN
     Indication: Product used for unknown indication
     Dosage: FIRST, SECOND AND THIRD TRIMESTER
     Route: 064
     Dates: start: 201811, end: 201907
  6. ACETAMINOPHEN [Suspect]
     Active Substance: ACETAMINOPHEN
     Indication: Product used for unknown indication
     Dosage: FIRST, SECOND AND THIRD TRIMESTER
     Route: 064
     Dates: start: 201811, end: 201907
  7. ACETAMINOPHEN [Suspect]
     Active Substance: ACETAMINOPHEN
     Indication: Product used for unknown indication
     Dosage: FIRST, SECOND AND THIRD TRIMESTER
     Route: 064
     Dates: start: 201811, end: 201907
  8. ACETAMINOPHEN [Suspect]
     Active Substance: ACETAMINOPHEN
     Indication: Product used for unknown indication
     Dosage: FIRST, SECOND AND THIRD TRIMESTER
     Route: 064
     Dates: start: 201811, end: 201907
  9. ACETAMINOPHEN [Suspect]
     Active Substance: ACETAMINOPHEN
     Indication: Product used for unknown indication
     Dosage: FIRST, SECOND AND THIRD TRIMESTER
     Route: 064
     Dates: start: 201811, end: 201907
  10. ACETAMINOPHEN [Suspect]
     Active Substance: ACETAMINOPHEN
     Indication: Product used for unknown indication
     Dosage: FIRST, SECOND AND THIRD TRIMESTER
     Route: 064
     Dates: start: 201811, end: 201907
  11. ACETAMINOPHEN [Suspect]
     Active Substance: ACETAMINOPHEN
     Indication: Product used for unknown indication
     Route: 064
     Dates: start: 201810, end: 201907
  12. ACETAMINOPHEN [Suspect]
     Active Substance: ACETAMINOPHEN
     Indication: Product used for unknown indication
     Route: 064
     Dates: start: 201810, end: 201907

REACTIONS (2)
  - Autism spectrum disorder [Unknown]
  - Foetal exposure during pregnancy [Unknown]

NARRATIVE: CASE EVENT DATE: 20230207
